FAERS Safety Report 12036947 (Version 2)
Quarter: 2016Q1

REPORT INFORMATION
  Report Type: Report from Study
  Country: US (occurrence: US)
  Receive Date: 20160208
  Receipt Date: 20160211
  Transmission Date: 20160526
  Serious: No
  Sender: FDA-Public Use
  Company Number: US-AMGEN-USASL2016011917

PATIENT
  Age: 37 Year
  Sex: Male

DRUGS (1)
  1. ENBREL [Suspect]
     Active Substance: ETANERCEPT
     Indication: ANKYLOSING SPONDYLITIS
     Dosage: 50 MG, QWK
     Route: 065
     Dates: start: 2015

REACTIONS (13)
  - Injection site extravasation [Unknown]
  - Device leakage [Unknown]
  - Limb discomfort [Unknown]
  - Grip strength decreased [Unknown]
  - Device defective [Unknown]
  - Injection site pruritus [Unknown]
  - Injection site irritation [Unknown]
  - Injection site mass [Unknown]
  - Underdose [Unknown]
  - Mobility decreased [Unknown]
  - Injection site pain [Unknown]
  - Needle issue [Unknown]
  - Injection site erythema [Unknown]
